FAERS Safety Report 16522115 (Version 2)
Quarter: 2019Q3

REPORT INFORMATION
  Report Type: Spontaneous
  Country: US (occurrence: US)
  Receive Date: 20190703
  Receipt Date: 20190711
  Transmission Date: 20191004
  Serious: Yes (Other)
  Sender: FDA-Public Use
  Company Number: US-REGENERON PHARMACEUTICALS, INC.-2019-40114

PATIENT

DRUGS (1)
  1. AFLIBERCEPT IAI [Suspect]
     Active Substance: AFLIBERCEPT
     Indication: AGE-RELATED MACULAR DEGENERATION
     Dosage: EVERY 4-6 WEEKS (16 INJECTIONS OF 2MG AFLIBERCEPT IN THE PERIOD BETWEEN JANUARY 2015 AND JULY 2016)

REACTIONS (1)
  - Hypertension [Not Recovered/Not Resolved]

NARRATIVE: CASE EVENT DATE: 2015
